FAERS Safety Report 4773374-X (Version None)
Quarter: 2005Q3

REPORT INFORMATION
  Report Type: 
  Country: None (occurrence: None)
  Receive Date: 20050914
  Receipt Date: 20041028
  Transmission Date: 20060218
  Serious: Yes (Death)
  Sender: FDA-Public Use
  Company Number: 163-20785-04100847

PATIENT
  Age: 54 Year
  Sex: Female

DRUGS (1)
  1. THALOMID [Suspect]
     Indication: METASTATIC MALIGNANT MELANOMA
     Dosage: 400 MG, QHS, ORAL
     Route: 048
     Dates: start: 20040401, end: 20040601

REACTIONS (1)
  - DISEASE PROGRESSION [None]
